FAERS Safety Report 9470044 (Version 1)
Quarter: 2013Q3

REPORT INFORMATION
  Report Type: Spontaneous
  Country: BR (occurrence: BR)
  Receive Date: 20130822
  Receipt Date: 20130822
  Transmission Date: 20140515
  Serious: Yes (Other)
  Sender: FDA-Public Use
  Company Number: BR-AMGEN-BRASP2013058774

PATIENT
  Age: 50 Year
  Sex: Female
  Weight: 92 kg

DRUGS (5)
  1. ENBREL [Suspect]
     Indication: RHEUMATOID ARTHRITIS
     Dosage: 50 MG, ONCE WEEKLY
     Route: 058
     Dates: end: 2011
  2. ATENOLOL [Concomitant]
     Indication: HYPERTENSION
     Dosage: 50 MG, 1X/DAY
  3. REUQUINOL [Concomitant]
     Dosage: 400 MG, 1X/DAY
  4. FLANCOX [Concomitant]
     Dosage: 400 MG, 1X/DAY
  5. HARPADOL [Concomitant]
     Dosage: 400 MG, 1X/DAY

REACTIONS (3)
  - Gastrointestinal disorder [Unknown]
  - Impaired healing [Unknown]
  - Pain [Unknown]
